FAERS Safety Report 5287689-2 (Version None)
Quarter: 2007Q1

REPORT INFORMATION
  Report Type: 
  Country: None (occurrence: None)
  Receive Date: 20070116
  Receipt Date: 20061206
  Transmission Date: 20070707
  Serious: No
  Sender: FDA-Public Use
  Company Number: 2005SP000699

PATIENT
  Age: 55 Year
  Sex: Male

DRUGS (1)
  1. LUNESTA [Suspect]
     Dosage: 2 MG; 1X; ORAL
     Route: 048
     Dates: start: 20050101, end: 20050101

REACTIONS (3)
  - ANGER [None]
  - SOMNOLENCE [None]
  - STRESS [None]
